FAERS Safety Report 8241326-3 (Version None)
Quarter: 2012Q1

REPORT INFORMATION
  Report Type: 
  Country: None (occurrence: None)
  Receive Date: 20120328
  Receipt Date: 20120323
  Transmission Date: 20120608
  Serious: Yes (Other)
  Sender: FDA-Public Use
  Company Number: RU-PFIZER INC-2012067015

PATIENT
  Age: 94 Year
  Sex: Male

DRUGS (10)
  1. INSPRA [Suspect]
     Indication: CARDIAC FAILURE CHRONIC
     Dosage: 25 MG, 1X/DAY
     Route: 048
     Dates: start: 20111201, end: 20120301
  2. CARDIOMAGNYL [Concomitant]
     Indication: THROMBOSIS PROPHYLAXIS
     Dosage: 75 MG, 1X/DAY
     Route: 048
     Dates: start: 20110101
  3. KARDIKET [Concomitant]
     Indication: CARDIAC FAILURE CHRONIC
     Dosage: 20 MG, 2X/DAY
     Route: 048
     Dates: start: 20110101
  4. KARDIKET [Concomitant]
     Indication: CARDIOVASCULAR INSUFFICIENCY
  5. METOPROLOL [Concomitant]
     Indication: ATRIAL FIBRILLATION
     Dosage: 12.5 MG, 2X/DAY
     Route: 048
     Dates: start: 20110101
  6. INSPRA [Suspect]
     Indication: CARDIOVASCULAR INSUFFICIENCY
  7. DIUVER [Concomitant]
     Indication: CARDIOVASCULAR INSUFFICIENCY
  8. DIUVER [Concomitant]
     Indication: CARDIAC FAILURE CHRONIC
     Dosage: 5 MG, 1X/DAY (IN THE MORNING)
     Route: 048
     Dates: start: 20110101
  9. PRADAXA [Concomitant]
     Indication: THROMBOSIS PROPHYLAXIS
     Dosage: 75 MG, 1X/DAY
     Route: 048
     Dates: start: 20110101
  10. DIGOXIN [Concomitant]
     Indication: ATRIAL FIBRILLATION
     Dosage: 250 UG (1 TABLET), 1X/DAY, 5 DAYS IN A WEEK
     Route: 048
     Dates: start: 20110101

REACTIONS (3)
  - QUALITY OF LIFE DECREASED [None]
  - DYSPNOEA [None]
  - CARDIAC FAILURE CHRONIC [None]
